FAERS Safety Report 9923872 (Version 2)
Quarter: 2014Q1

REPORT INFORMATION
  Report Type: Spontaneous
  Country: US (occurrence: US)
  Receive Date: 20140225
  Receipt Date: 20140225
  Transmission Date: 20141002
  Serious: Yes (Other)
  Sender: FDA-Public Use
  Company Number: US-AMGEN-USASP2013079109

PATIENT
  Age: 37 Year
  Sex: Female
  Weight: 74.83 kg

DRUGS (3)
  1. ENBREL [Suspect]
     Indication: ANKYLOSING SPONDYLITIS
     Dosage: 50 MG, QWK
     Route: 058
     Dates: end: 201311
  2. SIMPONI [Suspect]
     Indication: PRODUCT USED FOR UNKNOWN INDICATION
     Dosage: UNK
     Route: 065
  3. HUMIRA [Suspect]
     Indication: PRODUCT USED FOR UNKNOWN INDICATION
     Dosage: UNK
     Route: 065

REACTIONS (6)
  - Lupus-like syndrome [Unknown]
  - Alopecia [Not Recovered/Not Resolved]
  - Nasal dryness [Not Recovered/Not Resolved]
  - Rhinalgia [Not Recovered/Not Resolved]
  - Oral pain [Not Recovered/Not Resolved]
  - Fatigue [Unknown]
